FAERS Safety Report 6850081-0 (Version None)
Quarter: 2010Q3

REPORT INFORMATION
  Report Type: 
  Country: None (occurrence: None)
  Receive Date: 20100716
  Receipt Date: 20080627
  Transmission Date: 20110219
  Serious: Yes (Other)
  Sender: FDA-Public Use
  Company Number: US-PFIZER INC-2007085299

PATIENT
  Sex: Male
  Weight: 97 kg

DRUGS (4)
  1. CHANTIX [Suspect]
     Indication: SMOKING CESSATION THERAPY
     Dates: start: 20070203
  2. NEXIUM [Concomitant]
  3. LIPITOR [Concomitant]
     Indication: BLOOD CHOLESTEROL INCREASED
  4. AMITIZA [Concomitant]
     Indication: IRRITABLE BOWEL SYNDROME

REACTIONS (1)
  - DENTAL CARIES [None]
